FAERS Safety Report 9652014 (Version 1)
Quarter: 2013Q4

REPORT INFORMATION
  Report Type: Spontaneous
  Country: US (occurrence: US)
  Receive Date: 20131029
  Receipt Date: 20131029
  Transmission Date: 20140711
  Serious: Yes (Disabling, Other)
  Sender: FDA-Public Use
  Company Number: US-SA-2013SA109360

PATIENT
  Age: 60 Year
  Sex: Female

DRUGS (3)
  1. LANTUS SOLOSTAR [Suspect]
     Indication: TYPE 2 DIABETES MELLITUS
     Dosage: DOSE:30 UNIT(S)
     Route: 058
  2. HUMALOG [Suspect]
     Route: 065
  3. SOLOSTAR [Concomitant]

REACTIONS (3)
  - Eye disorder [Unknown]
  - Disability [Unknown]
  - Blood glucose increased [Unknown]
